FAERS Safety Report 7480381-5 (Version None)
Quarter: 2011Q2

REPORT INFORMATION
  Report Type: 
  Country: None (occurrence: None)
  Receive Date: 20110504
  Receipt Date: 20110428
  Transmission Date: 20111010
  Serious: No
  Sender: FDA-Public Use
  Company Number: 20097041

PATIENT
  Sex: Female

DRUGS (1)
  1. LIORESAL [Suspect]
     Indication: MUSCLE SPASTICITY
     Dosage: MCG, DAILY, INTRATHECAL
     Route: 039

REACTIONS (6)
  - HYDROCEPHALUS [None]
  - WOUND DEHISCENCE [None]
  - DEVICE RELATED INFECTION [None]
  - IMPLANT SITE DISCHARGE [None]
  - IMPLANT SITE EROSION [None]
  - BACTERIAL INFECTION [None]
